FAERS Safety Report 9786429 (Version 2)
Quarter: 2013Q4

REPORT INFORMATION
  Report Type: Report from Study
  Country: HU (occurrence: HU)
  Receive Date: 20131227
  Receipt Date: 20131227
  Transmission Date: 20140711
  Serious: Yes (Hospitalization)
  Sender: FDA-Public Use
  Company Number: HU-VERTEX PHARMACEUTICALS INC-2013-010596

PATIENT
  Age: 59 Year
  Sex: Male

DRUGS (4)
  1. INCIVO [Suspect]
     Indication: HEPATITIS C
     Dosage: 1125 MG, BID
     Route: 065
     Dates: start: 20130902, end: 20131124
  2. COPEGUS [Suspect]
     Indication: PRODUCT USED FOR UNKNOWN INDICATION
     Dosage: DOSAGE FORM: TABLET
  3. COPEGUS [Suspect]
     Dosage: DOSAGE FORM: TABLET
  4. PEG-INTERFERON [Suspect]
     Indication: PRODUCT USED FOR UNKNOWN INDICATION

REACTIONS (17)
  - Haematochezia [Recovered/Resolved]
  - Anaemia [Unknown]
  - Rash [Unknown]
  - Pruritus [Unknown]
  - Dyspepsia [Recovered/Resolved]
  - Sciatica [Unknown]
  - Dry mouth [Unknown]
  - Dizziness [Recovered/Resolved]
  - Therapeutic response unexpected [Recovered/Resolved]
  - Muscle spasms [Unknown]
  - Fatigue [Unknown]
  - Dyspnoea exertional [Unknown]
  - Body temperature decreased [Unknown]
  - Arthritis [Recovered/Resolved]
  - Tinnitus [Recovered/Resolved]
  - Nausea [Unknown]
  - Painful defaecation [Recovered/Resolved]
